FAERS Safety Report 14505503 (Version 1)
Quarter: 2018Q1

REPORT INFORMATION
  Report Type: Spontaneous
  Country: US (occurrence: US)
  Receive Date: 20180208
  Receipt Date: 20180208
  Transmission Date: 20180509
  Serious: No
  Sender: FDA-Public Use
  Company Number: US-TAKEDA-2018TUS002817

PATIENT
  Sex: Female

DRUGS (1)
  1. ENTYVIO [Suspect]
     Active Substance: VEDOLIZUMAB
     Indication: CROHN^S DISEASE
     Dosage: UNK
     Route: 065
     Dates: start: 201606

REACTIONS (4)
  - Spinal pain [Not Recovered/Not Resolved]
  - Intervertebral disc protrusion [Unknown]
  - Neuralgia [Not Recovered/Not Resolved]
  - Infection [Unknown]
